FAERS Safety Report 5236032-3 (Version None)
Quarter: 2007Q1

REPORT INFORMATION
  Report Type: 
  Country: None (occurrence: None)
  Receive Date: 20061208
  Receipt Date: 20060605
  Transmission Date: 20070707
  Serious: Yes (Other)
  Sender: FDA-Public Use
  Company Number: 2006UW10760

PATIENT
  Age: 73 Year
  Sex: Female
  Weight: 68.038 kg

DRUGS (8)
  1. CRESTOR [Suspect]
     Indication: HYPERCHOLESTEROLAEMIA
     Dosage: 10 MG PO
     Route: 048
     Dates: start: 20060201
  2. CRESTOR [Suspect]
     Indication: HYPERCHOLESTEROLAEMIA
     Dosage: 5 MG PO
     Route: 048
     Dates: start: 20060301
  3. LYRICA [Concomitant]
  4. CLONAZEPAM [Concomitant]
  5. MOBIC [Concomitant]
  6. BENADRYL [Concomitant]
  7. ASPIRIN [Concomitant]
  8. TYLENOL [Concomitant]

REACTIONS (4)
  - ARTHRALGIA [None]
  - GAIT DISTURBANCE [None]
  - OEDEMA PERIPHERAL [None]
  - PAIN IN EXTREMITY [None]
